FAERS Safety Report 7482874-3 (Version None)
Quarter: 2011Q2

REPORT INFORMATION
  Report Type: 
  Country: None (occurrence: None)
  Receive Date: 20110516
  Receipt Date: 20110502
  Transmission Date: 20111010
  Serious: Yes (Death, Other)
  Sender: FDA-Public Use
  Company Number: US-BAYER-2011-039296

PATIENT
  Sex: Male

DRUGS (10)
  1. OPTIMARK [Suspect]
     Indication: ANGIOGRAM
  2. MULTIHANCE [Suspect]
     Indication: NUCLEAR MAGNETIC RESONANCE IMAGING
  3. MULTIHANCE [Suspect]
     Indication: ANGIOGRAM
  4. MAGNEVIST [Suspect]
     Indication: NUCLEAR MAGNETIC RESONANCE IMAGING
     Dosage: 10 ML, ONCE
     Dates: start: 20060825, end: 20060825
  5. PROHANCE [Suspect]
     Indication: ANGIOGRAM
  6. OPTIMARK [Suspect]
     Indication: NUCLEAR MAGNETIC RESONANCE IMAGING
  7. PROHANCE [Suspect]
     Indication: NUCLEAR MAGNETIC RESONANCE IMAGING
  8. MAGNEVIST [Suspect]
     Indication: BACK PAIN
  9. OMNISCAN [Suspect]
     Indication: NUCLEAR MAGNETIC RESONANCE IMAGING
  10. OMNISCAN [Suspect]
     Indication: ANGIOGRAM

REACTIONS (18)
  - FIBROSIS [None]
  - SKIN TIGHTNESS [None]
  - SKIN FIBROSIS [None]
  - CARDIOVASCULAR DISORDER [None]
  - EXTREMITY CONTRACTURE [None]
  - GAIT DISTURBANCE [None]
  - BURNING SENSATION [None]
  - JOINT CONTRACTURE [None]
  - ASTHENIA [None]
  - JOINT RANGE OF MOTION DECREASED [None]
  - SKIN DISCOLOURATION [None]
  - MUSCULOSKELETAL STIFFNESS [None]
  - NEPHROGENIC SYSTEMIC FIBROSIS [None]
  - PEAU D'ORANGE [None]
  - PRURITUS [None]
  - SKIN INDURATION [None]
  - SKIN LESION [None]
  - PAIN [None]
